FAERS Safety Report 5219202-X (Version None)
Quarter: 2007Q1

REPORT INFORMATION
  Report Type: 
  Country: None (occurrence: None)
  Receive Date: 20070125
  Receipt Date: 20070119
  Transmission Date: 20070707
  Serious: Yes (Death)
  Sender: FDA-Public Use
  Company Number: 2007AC00057

PATIENT
  Age: 671 Month
  Sex: Female

DRUGS (5)
  1. SEROQUEL [Suspect]
     Route: 048
  2. EFFEXOR [Suspect]
     Route: 048
  3. SELECTOL [Suspect]
     Route: 048
  4. PANTOZOL [Suspect]
     Route: 048
  5. LORAMET [Concomitant]

REACTIONS (2)
  - COMPLETED SUICIDE [None]
  - MULTIPLE DRUG OVERDOSE [None]
